FAERS Safety Report 13985863 (Version 1)
Quarter: 2017Q3

REPORT INFORMATION
  Report Type: Spontaneous
  Country: US (occurrence: None)
  Receive Date: 20170919
  Receipt Date: 20170919
  Transmission Date: 20171128
  Serious: Yes (Other)
  Sender: FDA-Public Use
  Company Number: None

PATIENT
  Sex: Male

DRUGS (1)
  1. COSENTYX [Suspect]
     Active Substance: SECUKINUMAB
     Indication: MYOCARDITIS
     Dosage: 150MG EVERY 4 WEEKS SUBCUTANEOUSLY
     Route: 058
     Dates: start: 20170721, end: 20170824

REACTIONS (2)
  - Therapy cessation [None]
  - Rectal haemorrhage [None]
